FAERS Safety Report 4544446-X (Version None)
Quarter: 2004Q4

REPORT INFORMATION
  Report Type: 
  Country: None (occurrence: None)
  Receive Date: 20041230
  Receipt Date: 20030624
  Transmission Date: 20050328
  Serious: Yes (Other)
  Sender: FDA-Public Use
  Company Number: 200410547BBE

PATIENT
  Sex: Female

DRUGS (15)
  1. HYPRHO-D [Suspect]
     Indication: PREGNANCY
  2. INJECTABLE GLOBULIN (JOHNSON AND JOHNSON) (IMMUNOGLOBULINS) [Suspect]
     Indication: PREGNANCY
  3. INJECTABLE GLOBULIN (ORTHOCLININCAL DIAGNOSTICS) (IMMUNOGLOBULINS) [Suspect]
     Indication: PREGNANCY
  4. INJECTABLE GLOBULIN (ABBOTT LABORATORIES) (IMMUNOGLOBULINS) [Suspect]
  5. INJECTABLE GLOBULIN (AMERICAN HOME PRODUCTS-WYETH) (IMMUNOGLOBULINS) [Suspect]
  6. INJECTABLE GLOBULIN (AVENTIS PASTEUR, INC) (IMMUNOGLOBULINS) [Suspect]
  7. INJECTABLE GLOBULIN (DOW CHEMICAL COMPANY) (IMMUNOGLOBULINS) [Suspect]
  8. INJECTABLE GLOBULIN (ELI LILLY AND COMPANY) (IMMUNOGLOBULINS) [Suspect]
  9. INJECTABLE GLOBULIN (GLAXOSMITHKLINE) (IMMUNOGLOBULINS) [Suspect]
  10. INJECTABLE GLOBULIN (KING PHARMACEUTICALS, INC) (IMMUNOGLOBULINS) [Suspect]
  11. INJECTABLE GLOBULIN (MEDEVA PHARMACEUTICALS) (IMMUNOGLOBULINS) [Suspect]
  12. INJECTABLE GLOBULIN (MERCK AND COMPANY) (IMMUNOGLOBULINS) [Suspect]
  13. INJECTABLE GLOBULIN (SIGMA-ALDRICH COMPANY) (IMMUNOGLOBULINS) [Suspect]
  14. INJECTABLE GLOBULIN (SPECTRUM CHEMICAL MANUFACTURING) (IMMUNOGLOBULINS [Suspect]
  15. . [Suspect]

REACTIONS (1)
  - ADVERSE EVENT [None]
